FAERS Safety Report 19882103 (Version 1)
Quarter: 2021Q3

REPORT INFORMATION
  Report Type: Spontaneous
  Country: US (occurrence: US)
  Receive Date: 20210924
  Receipt Date: 20210924
  Transmission Date: 20211014
  Serious: Yes (Death, Other)
  Sender: FDA-Public Use
  Company Number: US-PFIZER INC-2018324072

PATIENT
  Age: 34 Year
  Sex: Female

DRUGS (5)
  1. ACETAMINOPHEN. [Concomitant]
     Active Substance: ACETAMINOPHEN
     Indication: PREMEDICATION
     Dosage: 650 MG, UNK (30 MIN PRIOR TO ATG INFUSION)
     Route: 048
  2. DIPHENHYDRAMINE. [Concomitant]
     Active Substance: DIPHENHYDRAMINE
     Indication: PREMEDICATION
     Dosage: 50 MG, UNK (30 MIN PRIOR TO ATG INFUSION)
     Route: 042
  3. ANTILYMPHOCYTE IMMUNOGLOBULINS [Suspect]
     Active Substance: THYMOCYTE IMMUNE GLOBULIN NOS
     Indication: PAROXYSMAL NOCTURNAL HAEMOGLOBINURIA
     Dosage: 20 MG/KG, DAILY (HIGHER DOSE)
     Route: 042
  4. PREDNISONE. [Concomitant]
     Active Substance: PREDNISONE
     Indication: SERUM SICKNESS
     Dosage: UNK (AT VARYING DOSES AND SCHEDULES)
  5. PREDNISONE. [Concomitant]
     Active Substance: PREDNISONE
     Indication: PAROXYSMAL NOCTURNAL HAEMOGLOBINURIA
     Dosage: UNK (TAPERED AS TOLERATED)

REACTIONS (5)
  - Drug ineffective for unapproved indication [Unknown]
  - Haemolysis [Unknown]
  - Off label use [Unknown]
  - Bacterial sepsis [Fatal]
  - Condition aggravated [Unknown]
